FAERS Safety Report 19281671 (Version 13)
Quarter: 2023Q2

REPORT INFORMATION
  Report Type: Report from Study
  Country: PA (occurrence: PA)
  Receive Date: 20210520
  Receipt Date: 20230425
  Transmission Date: 20230722
  Serious: Yes (Other)
  Sender: FDA-Public Use
  Company Number: NVSC2020PA192929

PATIENT
  Age: 63 Year
  Sex: Female
  Weight: 80 kg

DRUGS (16)
  1. KISQALI [Suspect]
     Active Substance: RIBOCICLIB
     Indication: Breast cancer metastatic
     Dosage: 200 MG, QD
     Route: 048
     Dates: start: 20191127
  2. KISQALI [Suspect]
     Active Substance: RIBOCICLIB
     Dosage: 600 MG, QD
     Route: 048
     Dates: start: 20191127
  3. KISQALI [Suspect]
     Active Substance: RIBOCICLIB
     Dosage: 600 MG, QD
     Route: 048
     Dates: start: 201911
  4. KISQALI [Suspect]
     Active Substance: RIBOCICLIB
     Dosage: 600 MG, QD
     Route: 048
     Dates: start: 2020
  5. KISQALI [Suspect]
     Active Substance: RIBOCICLIB
     Dosage: 200 MG, QD
     Route: 048
  6. KISQALI [Suspect]
     Active Substance: RIBOCICLIB
     Dosage: 400 MG, QD
     Route: 048
  7. ZOMETA [Suspect]
     Active Substance: ZOLEDRONIC ACID
     Indication: Metastases to spine
     Dosage: UNK, Q3MO
     Route: 030
  8. ANASTROZOLE [Suspect]
     Active Substance: ANASTROZOLE
     Indication: Breast cancer
     Dosage: 1 DOSAGE FORM, QD
     Route: 048
     Dates: start: 201905, end: 20191127
  9. FULVESTRANT [Suspect]
     Active Substance: FULVESTRANT
     Indication: Product used for unknown indication
     Dosage: UNK, QMO
     Route: 065
  10. CETIRIZINE [Suspect]
     Active Substance: CETIRIZINE HYDROCHLORIDE
     Indication: Product used for unknown indication
     Dosage: UNK
     Route: 065
  11. METFORMIN [Concomitant]
     Active Substance: METFORMIN HYDROCHLORIDE
     Indication: Product used for unknown indication
     Dosage: UNK
     Route: 065
  12. GLYBURIDE [Concomitant]
     Active Substance: GLYBURIDE
     Indication: Product used for unknown indication
     Dosage: UNK
     Route: 065
  13. IRBESARTAN [Concomitant]
     Active Substance: IRBESARTAN
     Indication: Hypertension
     Dosage: 300 MG, QD
     Route: 065
     Dates: start: 2015
  14. SODIUM BICARBONATE [Concomitant]
     Active Substance: SODIUM BICARBONATE
     Indication: Product used for unknown indication
     Dosage: UNK
     Route: 065
  15. VITAMIN D [Concomitant]
     Active Substance: VITAMIN D NOS
     Indication: Product used for unknown indication
     Dosage: 600 MG
     Route: 065
  16. CALCIUM [Concomitant]
     Active Substance: CALCIUM
     Indication: Product used for unknown indication
     Dosage: 600 MG
     Route: 065

REACTIONS (43)
  - Metastases to ovary [Unknown]
  - Metastases to bone [Unknown]
  - Metastases to spine [Unknown]
  - Metastasis [Unknown]
  - Somnolence [Unknown]
  - Vomiting [Recovered/Resolved]
  - Constipation [Unknown]
  - Onychoclasis [Unknown]
  - Stress [Unknown]
  - Malaise [Unknown]
  - Blood glucose increased [Unknown]
  - Pain in extremity [Unknown]
  - Ill-defined disorder [Unknown]
  - Hypersomnia [Unknown]
  - Uterine leiomyoma [Unknown]
  - Nasal congestion [Recovering/Resolving]
  - Decreased immune responsiveness [Unknown]
  - Weight increased [Unknown]
  - Feeling abnormal [Unknown]
  - Hypersensitivity [Unknown]
  - Influenza [Recovered/Resolved]
  - Product use issue [Unknown]
  - Localised oedema [Unknown]
  - Tumour marker increased [Unknown]
  - Drug interaction [Unknown]
  - Osteoporosis [Unknown]
  - Acne [Unknown]
  - Nasopharyngitis [Unknown]
  - Dizziness [Unknown]
  - Decreased appetite [Unknown]
  - Alopecia [Unknown]
  - Nausea [Unknown]
  - Asthenia [Unknown]
  - Hypoglycaemia [Unknown]
  - Diarrhoea [Unknown]
  - Cough [Unknown]
  - Haemoglobin decreased [Unknown]
  - Vomiting [Unknown]
  - Fatigue [Unknown]
  - Rash [Unknown]
  - Erythema [Unknown]
  - Headache [Unknown]
  - Neck pain [Unknown]

NARRATIVE: CASE EVENT DATE: 20210401
